FAERS Safety Report 23768671 (Version 7)
Quarter: 2024Q3

REPORT INFORMATION
  Report Type: Spontaneous
  Country: DE (occurrence: DE)
  Receive Date: 20240422
  Receipt Date: 20240705
  Transmission Date: 20241016
  Serious: Yes (Other)
  Sender: MERCK
  Company Number: DE-009507513-2404DEU009691

PATIENT
  Sex: Male

DRUGS (3)
  1. KEYTRUDA [Suspect]
     Active Substance: PEMBROLIZUMAB
     Indication: Metastatic renal cell carcinoma
     Dosage: UNK
     Route: 041
  2. LENVATINIB MESYLATE [Suspect]
     Active Substance: LENVATINIB MESYLATE
     Indication: Metastatic renal cell carcinoma
     Dosage: UNK
     Route: 048
  3. LENVATINIB MESYLATE [Suspect]
     Active Substance: LENVATINIB MESYLATE
     Dosage: 14 MILLIGRAM
     Route: 048
     Dates: start: 202405

REACTIONS (9)
  - Tumour pseudoprogression [Unknown]
  - Malignant neoplasm progression [Unknown]
  - Prostate cancer [Unknown]
  - C-reactive protein increased [Unknown]
  - Alanine aminotransferase increased [Unknown]
  - Urinary tract infection [Unknown]
  - Nasopharyngitis [Unknown]
  - Gamma-glutamyltransferase increased [Unknown]
  - Product use issue [Unknown]
